FAERS Safety Report 10239692 (Version 1)
Quarter: 2014Q2

REPORT INFORMATION
  Report Type: Spontaneous
  Country: US (occurrence: None)
  Receive Date: 20140612
  Receipt Date: 20140612
  Transmission Date: 20141212
  Serious: Yes (Hospitalization)
  Sender: FDA-Public Use
  Company Number: UCM201405-000091

PATIENT
  Age: 53 Year
  Sex: Male

DRUGS (4)
  1. DIVALPROEX SODIUM [Suspect]
  2. BENZTROPINE [Suspect]
  3. FLUPHENAZINE [Suspect]
  4. CLONAZEPAM (CLONAZEPAM) (CLONAZEPAM) [Suspect]

REACTIONS (6)
  - Blood sodium increased [None]
  - Diabetes insipidus [None]
  - Toxicity to various agents [None]
  - Suicide attempt [None]
  - Overdose [None]
  - Lethargy [None]
